FAERS Safety Report 19736330 (Version 1)
Quarter: 2021Q3

REPORT INFORMATION
  Report Type: Spontaneous
  Country: US (occurrence: US)
  Receive Date: 20210824
  Receipt Date: 20210824
  Transmission Date: 20211014
  Serious: No
  Sender: FDA-Public Use
  Company Number: US-LUPIN PHARMACEUTICALS INC.-2021-15148

PATIENT
  Age: 44 Year
  Sex: Female

DRUGS (1)
  1. DOXYCYCLINE CAPSULES USP50 MG [Suspect]
     Active Substance: DOXYCYCLINE
     Indication: RASH
     Dosage: 50 MG
     Route: 065
     Dates: start: 202106, end: 202107

REACTIONS (3)
  - Product use in unapproved indication [Unknown]
  - Drug hypersensitivity [Not Recovered/Not Resolved]
  - Rash [Not Recovered/Not Resolved]

NARRATIVE: CASE EVENT DATE: 202107
